FAERS Safety Report 9787226 (Version 3)
Quarter: 2014Q1

REPORT INFORMATION
  Report Type: Spontaneous
  Country: US (occurrence: US)
  Receive Date: 20131229
  Receipt Date: 20140130
  Transmission Date: 20141002
  Serious: No
  Sender: FDA-Public Use
  Company Number: US-009507513-1312USA005429

PATIENT
  Age: 71 Year
  Sex: Female
  Weight: 69.84 kg

DRUGS (3)
  1. PEGINTRON [Suspect]
     Indication: HEPATITIS C
     Dosage: REDIPEN 0.4 CC QW (CONCENTRATION 120 MCG/0.5CC) WEEKLY
     Route: 058
     Dates: start: 20131020
  2. REBETOL [Suspect]
     Indication: HEPATITIS C
     Dosage: 2 AM AND 3 PM
     Route: 048
     Dates: start: 20131020
  3. INCIVEK [Suspect]
     Indication: HEPATITIS C
     Dosage: UNK
     Dates: start: 20131020, end: 20131214

REACTIONS (22)
  - Weight increased [Unknown]
  - Alopecia [Recovered/Resolved]
  - Pruritus generalised [Unknown]
  - Asthenia [Unknown]
  - Tooth injury [Unknown]
  - Dry mouth [Unknown]
  - Oral pain [Unknown]
  - Anal pruritus [Recovering/Resolving]
  - Pruritus [Recovering/Resolving]
  - Pain [Recovering/Resolving]
  - Oedema peripheral [Unknown]
  - Eye swelling [Unknown]
  - Alopecia [Recovered/Resolved]
  - Tooth fracture [Unknown]
  - Gingival disorder [Unknown]
  - Asthenia [Unknown]
  - Myalgia [Unknown]
  - Dizziness [Unknown]
  - Swelling [Unknown]
  - Pruritus [Recovered/Resolved]
  - Diarrhoea [Recovered/Resolved]
  - Inappropriate schedule of drug administration [Unknown]
